FAERS Safety Report 8835101 (Version 3)
Quarter: 2013Q1

REPORT INFORMATION
  Report Type: Spontaneous
  Country: DK (occurrence: None)
  Receive Date: 20121009
  Receipt Date: 20121227
  Transmission Date: 20140127
  Serious: Yes (Other)
  Sender: FDA-Public Use
  Company Number: AUR-APL-2012-04290

PATIENT
  Age: 18 Year
  Sex: Female

DRUGS (2)
  1. MIRTAZAPINE (MIRTAZAPINE) [Suspect]
     Indication: PRODUCT USED FOR UNKNOWN INDICATION
     Route: 048
     Dates: start: 2011
  2. SERTRALINE (SERTRALINE) [Concomitant]

REACTIONS (8)
  - Hypotension [None]
  - Slow speech [None]
  - Swollen tongue [None]
  - Syncope [None]
  - Heart rate decreased [None]
  - Fall [None]
  - Arrhythmia [None]
  - Wrong drug administered [None]
